FAERS Safety Report 20992551 (Version 6)
Quarter: 2022Q4

REPORT INFORMATION
  Report Type: Spontaneous
  Country: US (occurrence: US)
  Receive Date: 20220622
  Receipt Date: 20221017
  Transmission Date: 20230113
  Serious: No
  Sender: FDA-Public Use
  Company Number: US-PFIZER INC-202200822043

PATIENT
  Age: 59 Year
  Sex: Male

DRUGS (4)
  1. CIBINQO [Suspect]
     Active Substance: ABROCITINIB
     Indication: Dermatitis atopic
     Dosage: UNK
  2. CIBINQO [Suspect]
     Active Substance: ABROCITINIB
     Dosage: UNK, DAILY (1 TAB BY MOUTH EVERY DAY)
     Route: 048
  3. DUPIXENT [Suspect]
     Active Substance: DUPILUMAB
     Indication: Dermatitis atopic
     Dosage: UNK
     Dates: end: 20220531
  4. DUPIXENT [Suspect]
     Active Substance: DUPILUMAB
     Dosage: UNK
     Dates: end: 20220609

REACTIONS (3)
  - Rash erythematous [Unknown]
  - Eczema [Unknown]
  - Condition aggravated [Unknown]
